FAERS Safety Report 5399795-2 (Version None)
Quarter: 2007Q3

REPORT INFORMATION
  Report Type: 
  Country: None (occurrence: None)
  Receive Date: 20070730
  Receipt Date: 20070717
  Transmission Date: 20080115
  Serious: Yes (Other)
  Sender: FDA-Public Use
  Company Number: US-JNJFOC-20070500734

PATIENT
  Sex: Male
  Weight: 101.61 kg

DRUGS (7)
  1. REMICADE [Suspect]
     Indication: RHEUMATOID ARTHRITIS
     Route: 042
  2. VICODIN [Concomitant]
  3. SULFASALAZINE [Concomitant]
     Indication: PSORIATIC ARTHROPATHY
     Dosage: 4 IN AM; 4 IN PM
  4. FLEXERIL [Concomitant]
  5. DAYPRO [Concomitant]
  6. CALTRATE D [Concomitant]
  7. METHOTREXATE [Concomitant]

REACTIONS (3)
  - ABSCESS [None]
  - FOLLICULITIS [None]
  - PERIRECTAL ABSCESS [None]
